FAERS Safety Report 8847507 (Version 2)
Quarter: 2012Q4

REPORT INFORMATION
  Report Type: 
  Country: SE (occurrence: SE)
  Receive Date: 20121018
  Receipt Date: 20121115
  Transmission Date: 20130627
  Serious: Yes (Hospitalization)
  Sender: FDA-Public Use
  Company Number: SE-ELI_LILLY_AND_COMPANY-SE201210003703

PATIENT
  Age: 65 Year
  Sex: Male

DRUGS (6)
  1. ALIMTA [Suspect]
     Indication: LUNG ADENOCARCINOMA
     Dosage: UNK
     Dates: start: 20120813
  2. AVASTIN [Concomitant]
     Indication: LUNG ADENOCARCINOMA
     Dosage: UNK
     Route: 042
     Dates: start: 20120813, end: 20120814
  3. CARBOPLATIN TEVA [Concomitant]
     Indication: LUNG ADENOCARCINOMA
     Dosage: UNK
     Dates: start: 20120813
  4. SYMBICORT FORTE [Concomitant]
  5. BEHEPAN [Concomitant]
  6. PREDNISOLON [Concomitant]

REACTIONS (1)
  - Pulmonary embolism [Recovered/Resolved]
